FAERS Safety Report 4581566-8 (Version None)
Quarter: 2005Q1

REPORT INFORMATION
  Report Type: 
  Country: None (occurrence: None)
  Receive Date: 20050214
  Receipt Date: 20041118
  Transmission Date: 20050727
  Serious: Yes (Other)
  Sender: FDA-Public Use
  Company Number: US-GLAXOSMITHKLINE-A0534492A

PATIENT
  Age: 76 Year
  Sex: Female

DRUGS (7)
  1. LAMICTAL [Suspect]
     Indication: EPILEPSY
     Route: 048
     Dates: start: 20040301
  2. TOPROL-XL [Concomitant]
  3. NORVASC [Concomitant]
  4. ASPIRIN [Concomitant]
  5. HUMULIN N [Concomitant]
  6. PLAVIX [Concomitant]
  7. BETIMOL [Concomitant]

REACTIONS (5)
  - CONVULSION [None]
  - FLUSHING [None]
  - HYPERTENSION [None]
  - RASH [None]
  - SOMNOLENCE [None]
